FAERS Safety Report 15473174 (Version 1)
Quarter: 2018Q4

REPORT INFORMATION
  Report Type: Spontaneous
  Country: US (occurrence: US)
  Receive Date: 20181008
  Receipt Date: 20181008
  Transmission Date: 20190205
  Serious: No
  Sender: FDA-Public Use
  Company Number: US-JNJFOC-20180914970

PATIENT
  Sex: Female

DRUGS (2)
  1. LEVAQUIN [Suspect]
     Active Substance: LEVOFLOXACIN
     Indication: SINUSITIS
     Route: 048
  2. LEVOFLOXACIN. [Suspect]
     Active Substance: LEVOFLOXACIN
     Indication: SINUSITIS
     Route: 065

REACTIONS (7)
  - Adverse event [Not Recovered/Not Resolved]
  - Loss of personal independence in daily activities [Unknown]
  - Disturbance in attention [Unknown]
  - Dyspnoea [Unknown]
  - Syncope [Unknown]
  - Feeling abnormal [Unknown]
  - Malaise [Unknown]
